FAERS Safety Report 23912204 (Version 1)
Quarter: 2024Q2

REPORT INFORMATION
  Report Type: Other
  Country: DE (occurrence: DE)
  Receive Date: 20240528
  Receipt Date: 20240528
  Transmission Date: 20240716
  Serious: Yes (Life-Threatening, Hospitalization, Other)
  Sender: FDA-Public Use
  Company Number: DE-ROCHE-1603916

PATIENT
  Age: 64 Year
  Sex: Female
  Weight: 59 kg

DRUGS (14)
  1. ALECTINIB [Suspect]
     Active Substance: ALECTINIB
     Indication: Non-small cell lung cancer
     Route: 048
     Dates: start: 20150619, end: 20150703
  2. ALECTINIB [Suspect]
     Active Substance: ALECTINIB
     Route: 048
     Dates: start: 20150731, end: 20150821
  3. ALECTINIB [Suspect]
     Active Substance: ALECTINIB
     Route: 048
     Dates: start: 20150916
  4. ENOXAPARIN SODIUM [Concomitant]
     Active Substance: ENOXAPARIN SODIUM
     Indication: Pulmonary embolism
     Route: 058
     Dates: start: 20150101, end: 20150703
  5. ENOXAPARIN [Concomitant]
     Active Substance: ENOXAPARIN
     Indication: Pulmonary embolism
     Route: 058
     Dates: start: 201501
  6. NALOXONE HYDROCHLORIDE\OXYCODONE HYDROCHLORIDE [Concomitant]
     Active Substance: NALOXONE HYDROCHLORIDE\OXYCODONE HYDROCHLORIDE
     Indication: Pain
     Dosage: DOSE: 10/5 MG
     Route: 048
  7. NADROPARIN CALCIUM [Concomitant]
     Active Substance: NADROPARIN CALCIUM
     Indication: Pulmonary embolism
     Route: 058
     Dates: start: 20150101
  8. CALCIUM\CHOLECALCIFEROL [Concomitant]
     Active Substance: CALCIUM\CHOLECALCIFEROL
     Dosage: SUPPORTIVE THERAPY
     Route: 048
  9. DEXAMETHASONE [Concomitant]
     Active Substance: DEXAMETHASONE
     Indication: Metastases to central nervous system
     Route: 048
  10. PANTOPRAZOLE SODIUM [Concomitant]
     Active Substance: PANTOPRAZOLE SODIUM
     Indication: Gastritis
     Route: 048
  11. TORSEMIDE [Concomitant]
     Active Substance: TORSEMIDE
     Indication: Oedema
     Route: 048
  12. ZOPICLONE [Concomitant]
     Active Substance: ZOPICLONE
     Indication: Insomnia
     Route: 048
  13. UNSPECIFIED INGREDIENT [Concomitant]
     Active Substance: UNSPECIFIED INGREDIENT
  14. MIRTAZAPINE [Concomitant]
     Active Substance: MIRTAZAPINE
     Indication: Depression
     Dosage: DAILY DOSE: 15 MG MILLIGRAM(S) EVERY DAY

REACTIONS (23)
  - Retroperitoneal haemorrhage [Recovered/Resolved]
  - Retroperitoneal haematoma [Recovered/Resolved]
  - Large intestine perforation [Recovered/Resolved with Sequelae]
  - Diverticulitis [Recovered/Resolved with Sequelae]
  - Peritonitis [Recovered/Resolved with Sequelae]
  - Blood creatine phosphokinase increased [Recovered/Resolved]
  - Pyelonephritis [Recovered/Resolved]
  - Pelvic pain [Unknown]
  - Gastritis [Recovered/Resolved]
  - Decreased appetite [Unknown]
  - General physical health deterioration [Unknown]
  - Pelvic haematoma [Recovered/Resolved]
  - Large intestine perforation [Unknown]
  - Arthralgia [Not Recovered/Not Resolved]
  - Metastases to central nervous system [Unknown]
  - Arthralgia [Unknown]
  - General physical health deterioration [Unknown]
  - Pyrexia [Recovering/Resolving]
  - Sepsis [Recovering/Resolving]
  - Rhabdomyolysis [Unknown]
  - Cachexia [Unknown]
  - Nausea [Unknown]
  - Transaminases increased [Recovered/Resolved]

NARRATIVE: CASE EVENT DATE: 20150630
